FAERS Safety Report 6955274-X (Version None)
Quarter: 2010Q3

REPORT INFORMATION
  Report Type: 
  Country: None (occurrence: None)
  Receive Date: 20100830
  Receipt Date: 20100816
  Transmission Date: 20110219
  Serious: Yes (Hospitalization, Other)
  Sender: FDA-Public Use
  Company Number: PHHY2009AU00665

PATIENT
  Sex: Male

DRUGS (7)
  1. CLOZARIL [Suspect]
     Dosage: 12.5 UNK, UNK
     Dates: start: 20070424, end: 20081214
  2. OLANZAPINE [Suspect]
     Dosage: 10 MG, BID
     Route: 048
  3. LORAZEPAM [Concomitant]
     Dosage: 01 MG MANE, 2 MG NOCTE
  4. BENZATROPINE [Concomitant]
     Dosage: 10 MG, BID
  5. VALPROATE SODIUM [Concomitant]
     Dosage: 1.5 MG MANE, 1 G NOCTE
  6. PANTOPRAZOLE [Concomitant]
     Dosage: 40 MG MANE
  7. ZUCLOPENTHIXOL DECANOATE [Concomitant]
     Dosage: 400 MG 2/52
     Route: 030

REACTIONS (11)
  - BALANCE DISORDER [None]
  - BLOOD GLUCOSE INCREASED [None]
  - BLOOD LACTATE DEHYDROGENASE INCREASED [None]
  - DIZZINESS [None]
  - EOSINOPHIL COUNT DECREASED [None]
  - GAIT DISTURBANCE [None]
  - HEART RATE INCREASED [None]
  - PALPITATIONS [None]
  - SCHIZOPHRENIA [None]
  - SINUS TACHYCARDIA [None]
  - TREATMENT NONCOMPLIANCE [None]
